FAERS Safety Report 9506372 (Version 2)
Quarter: 2014Q1

REPORT INFORMATION
  Report Type: Spontaneous
  Country: US (occurrence: None)
  Receive Date: 20130301
  Receipt Date: 20140304
  Transmission Date: 20141002
  Serious: Yes (Other)
  Sender: FDA-Public Use
  Company Number: RB-47697-2012

PATIENT
  Age: 22 Year
  Sex: Female

DRUGS (2)
  1. SUBOXONE [Suspect]
     Indication: PRODUCT USED FOR UNKNOWN INDICATION
     Route: 060
  2. SUBOXONE [Suspect]
     Indication: DRUG DEPENDENCE
     Route: 060

REACTIONS (2)
  - Hepatitis [None]
  - Maternal exposure during pregnancy [None]
